FAERS Safety Report 4877255-2 (Version None)
Quarter: 2006Q1

REPORT INFORMATION
  Report Type: 
  Country: None (occurrence: None)
  Receive Date: 20060109
  Receipt Date: 20060109
  Transmission Date: 20060701
  Serious: Yes (Hospitalization)
  Sender: FDA-Public Use
  Company Number: None

PATIENT
  Sex: Male
  Weight: 65.7716 kg

DRUGS (1)
  1. SEROQUEL [Suspect]
     Indication: DEMENTIA
     Dosage: 25 MG 1 ADAY
     Dates: start: 20050505, end: 20050615

REACTIONS (4)
  - ABDOMINAL STRANGULATED HERNIA [None]
  - DIARRHOEA [None]
  - RECTAL HAEMORRHAGE [None]
  - URINARY RETENTION [None]
